FAERS Safety Report 5245703-4 (Version None)
Quarter: 2007Q1

REPORT INFORMATION
  Report Type: 
  Country: None (occurrence: None)
  Receive Date: 20070216
  Receipt Date: 20070205
  Transmission Date: 20070707
  Serious: Yes (Other)
  Sender: FDA-Public Use
  Company Number: SPV1-2007-00595

PATIENT
  Age: 17 Year
  Sex: Male

DRUGS (1)
  1. ADDERALL 15 [Suspect]
     Indication: ATTENTION DEFICIT/HYPERACTIVITY DISORDER
     Dosage: UNK, UNK, UNK
     Dates: start: 20050101

REACTIONS (7)
  - ANOREXIA [None]
  - CONSCIOUSNESS FLUCTUATING [None]
  - DRUG ABUSER [None]
  - INSOMNIA [None]
  - INTENTIONAL OVERDOSE [None]
  - MIGRAINE [None]
  - NAUSEA [None]
